FAERS Safety Report 7946026-2 (Version None)
Quarter: 2011Q4

REPORT INFORMATION
  Report Type: 
  Country: None (occurrence: None)
  Receive Date: 20111129
  Receipt Date: 20111122
  Transmission Date: 20120403
  Serious: Yes (Death, Hospitalization)
  Sender: FDA-Public Use
  Company Number: US-GLAXOSMITHKLINE-A0853540A

PATIENT
  Age: 73 Year
  Sex: Male
  Weight: 113.6 kg

DRUGS (4)
  1. AVANDIA [Suspect]
     Indication: TYPE 2 DIABETES MELLITUS
     Dosage: 8MG PER DAY
     Route: 048
     Dates: start: 20040101, end: 20070919
  2. LISINOPRIL [Concomitant]
  3. METFORMIN HCL [Concomitant]
  4. ACIPHEX [Concomitant]

REACTIONS (4)
  - CORONARY ARTERY DISEASE [None]
  - WEIGHT INCREASED [None]
  - MYOCARDIAL INFARCTION [None]
  - CARDIAC ARREST [None]
